FAERS Safety Report 16143481 (Version 2)
Quarter: 2019Q2

REPORT INFORMATION
  Report Type: Spontaneous
  Country: GB (occurrence: GB)
  Receive Date: 20190401
  Receipt Date: 20190402
  Transmission Date: 20190711
  Serious: Yes (Hospitalization)
  Sender: FDA-Public Use
  Company Number: GB-RARE DISEASE THERAPEUTICS, INC.-2065073

PATIENT
  Age: 52 Year
  Sex: Male

DRUGS (10)
  1. ACICLOVIR [Concomitant]
     Active Substance: ACYCLOVIR
  2. FOLIC ACID. [Concomitant]
     Active Substance: FOLIC ACID
  3. SERTRALINE [Concomitant]
     Active Substance: SERTRALINE HYDROCHLORIDE
  4. NYSTAN [Concomitant]
     Active Substance: NYSTATIN
  5. FLUDROCORTISONE [Concomitant]
     Active Substance: FLUDROCORTISONE
  6. CLARITHROMYCIN. [Concomitant]
     Active Substance: CLARITHROMYCIN
  7. PURIXAN [Suspect]
     Active Substance: MERCAPTOPURINE
     Indication: ACUTE LYMPHOCYTIC LEUKAEMIA
     Route: 048
  8. COTRIMOXAZOLE [Suspect]
     Active Substance: SULFAMETHOXAZOLE\TRIMETHOPRIM
     Route: 048
  9. METHOTREXATE. [Suspect]
     Active Substance: METHOTREXATE
     Route: 048
  10. RANITIDINE. [Concomitant]
     Active Substance: RANITIDINE

REACTIONS (6)
  - Mucosal inflammation [Not Recovered/Not Resolved]
  - Mouth haemorrhage [Not Recovered/Not Resolved]
  - Mouth ulceration [Not Recovered/Not Resolved]
  - Gingival bleeding [Unknown]
  - Neutrophil count decreased [Not Recovered/Not Resolved]
  - Platelet count decreased [Not Recovered/Not Resolved]
